FAERS Safety Report 6901617-2 (Version None)
Quarter: 2010Q3

REPORT INFORMATION
  Report Type: 
  Country: None (occurrence: None)
  Receive Date: 20100803
  Receipt Date: 20080227
  Transmission Date: 20110219
  Serious: Yes (Other)
  Sender: FDA-Public Use
  Company Number: US-PFIZER INC-2008019473

PATIENT
  Sex: Female
  Weight: 78.181 kg

DRUGS (7)
  1. LYRICA [Suspect]
     Indication: NEUROPATHY PERIPHERAL
     Route: 048
     Dates: start: 20080101
  2. LASIX [Concomitant]
  3. NORVASC [Concomitant]
  4. TOPROL-XL [Concomitant]
  5. VOLTAREN [Concomitant]
     Indication: ARTHRITIS
  6. ZOCOR [Concomitant]
  7. ASPIRIN [Concomitant]

REACTIONS (3)
  - HYPERPHAGIA [None]
  - INTENTIONAL DRUG MISUSE [None]
  - WEIGHT INCREASED [None]
